FAERS Safety Report 13444861 (Version 1)
Quarter: 2017Q2

REPORT INFORMATION
  Report Type: Spontaneous
  Country: US (occurrence: US)
  Receive Date: 20170414
  Receipt Date: 20170414
  Transmission Date: 20170830
  Serious: No
  Sender: FDA-Public Use
  Company Number: US-ASTRAZENECA-2017SE35596

PATIENT
  Sex: Female

DRUGS (1)
  1. FASLODEX [Suspect]
     Active Substance: FULVESTRANT
     Route: 030

REACTIONS (3)
  - Cough [Recovered/Resolved]
  - Drug hypersensitivity [Recovered/Resolved]
  - Tongue discomfort [Recovered/Resolved]

NARRATIVE: CASE EVENT DATE: 201703
